FAERS Safety Report 8221393-3 (Version None)
Quarter: 2012Q1

REPORT INFORMATION
  Report Type: 
  Country: None (occurrence: None)
  Receive Date: 20120320
  Receipt Date: 20120316
  Transmission Date: 20120608
  Serious: Yes (Death)
  Sender: FDA-Public Use
  Company Number: PHFR2012GB000723

PATIENT
  Sex: Male
  Weight: 107 kg

DRUGS (10)
  1. SENNA [Concomitant]
     Indication: CONSTIPATION
     Dosage: UNK UKN, UNK
     Route: 048
  2. INDAPAMIDE [Concomitant]
     Indication: HYPERTENSION
     Dosage: 2.5 MG, DAILY
     Route: 048
     Dates: start: 20120103
  3. CLOZARIL [Suspect]
     Indication: SCHIZOPHRENIA
     Dosage: UNK UKN, UNK
     Route: 048
     Dates: start: 19980707
  4. CLOZARIL [Suspect]
     Dosage: 375 MG, DAILY
     Route: 048
     Dates: start: 20080101
  5. LOSARTAN POTASSIUM [Concomitant]
     Indication: HYPERTENSION
     Dosage: 100 MG, DAILY
     Route: 048
     Dates: start: 20071206
  6. LERCANIDIPINE [Concomitant]
     Indication: HYPERTENSION
     Dosage: 10 MG, DAILY
     Route: 048
     Dates: start: 20110415
  7. LEVOTHYROXINE SODIUM [Concomitant]
     Indication: HYPOTHYROIDISM
     Dosage: 125 MG, DAILY
     Route: 048
     Dates: start: 20080101
  8. FLUOXETINE [Concomitant]
     Indication: DEPRESSION
     Dosage: 40 MG, DAILY
     Route: 048
     Dates: start: 20071206
  9. CLOZARIL [Suspect]
     Dosage: 75 MG,  DAILY AT MORNING
  10. CALCIUM CHANNEL BLOCKERS [Concomitant]
     Dosage: UNK UKN, UNK

REACTIONS (10)
  - MYOCARDIAL INFARCTION [None]
  - CYANOSIS [None]
  - OEDEMA PERIPHERAL [None]
  - ARRHYTHMIA [None]
  - MYOCARDIAL ISCHAEMIA [None]
  - ARTERIOSCLEROSIS CORONARY ARTERY [None]
  - HYPERTENSIVE HEART DISEASE [None]
  - INCONTINENCE [None]
  - OBSESSIVE-COMPULSIVE DISORDER [None]
  - HYPOTHYROIDISM [None]
